FAERS Safety Report 18082350 (Version 1)
Quarter: 2020Q3

REPORT INFORMATION
  Report Type: Spontaneous
  Country: US (occurrence: US)
  Receive Date: 20200728
  Receipt Date: 20200728
  Transmission Date: 20201103
  Serious: No
  Sender: FDA-Public Use
  Company Number: US-009507513-2007USA006263

PATIENT
  Age: 45 Year
  Sex: Male

DRUGS (3)
  1. RECOMBINANT HUMAN INTERLEUKIN?2 (UNSPECIFIED) [Suspect]
     Active Substance: ALDESLEUKIN
     Indication: METASTATIC MALIGNANT MELANOMA
  2. IPILIMUMAB [Suspect]
     Active Substance: IPILIMUMAB
     Indication: METASTATIC MALIGNANT MELANOMA
  3. KEYTRUDA [Suspect]
     Active Substance: PEMBROLIZUMAB
     Indication: METASTATIC MALIGNANT MELANOMA

REACTIONS (1)
  - Vitiligo [Unknown]
